FAERS Safety Report 17951909 (Version 1)
Quarter: 2020Q2

REPORT INFORMATION
  Report Type: Spontaneous
  Country: US (occurrence: US)
  Receive Date: 20200626
  Receipt Date: 20200626
  Transmission Date: 20200714
  Serious: No
  Sender: FDA-Public Use
  Company Number: NVSC2020US171041

PATIENT
  Age: 56 Year
  Sex: Female
  Weight: 71.67 kg

DRUGS (7)
  1. AROMASIN [Concomitant]
     Active Substance: EXEMESTANE
     Indication: AROMATASE INHIBITION THERAPY
     Dosage: 25 MG, QD
     Route: 048
  2. IBRANCE [Suspect]
     Active Substance: PALBOCICLIB
     Indication: BREAST CANCER METASTATIC
     Dosage: 125 MG, 1 TABLET DAILY FOR 3 WEEKS THEN OFF 1 WEEK; TAKES FOR 21 DAYS
     Route: 065
     Dates: start: 201510
  3. LORAZEPAM. [Concomitant]
     Active Substance: LORAZEPAM
     Indication: ANXIETY
     Dosage: 0.5 MG, 1 TABLET AS NEEDED
     Route: 048
  4. LETROZOLE. [Suspect]
     Active Substance: LETROZOLE
     Indication: PRODUCT USED FOR UNKNOWN INDICATION
     Route: 065
  5. ELIQUIS [Concomitant]
     Active Substance: APIXABAN
     Indication: PRODUCT USED FOR UNKNOWN INDICATION
     Dosage: 2.5 MG, QD
     Route: 065
  6. METOPROLOL. [Concomitant]
     Active Substance: METOPROLOL
     Indication: PRODUCT USED FOR UNKNOWN INDICATION
     Dosage: 25 MG, 1 TABLET
     Route: 048
     Dates: start: 2007
  7. FLEXERIL [Concomitant]
     Active Substance: CYCLOBENZAPRINE HYDROCHLORIDE
     Indication: MUSCLE RELAXANT THERAPY
     Dosage: 10 MG, 1 TABLET AS NEEDED
     Route: 048

REACTIONS (6)
  - Vertigo [Unknown]
  - Malaise [Unknown]
  - Arthralgia [Unknown]
  - Vision blurred [Unknown]
  - Skin exfoliation [Unknown]
  - Sensitive skin [Unknown]

NARRATIVE: CASE EVENT DATE: 202004
